FAERS Safety Report 4419639-2 (Version None)
Quarter: 2004Q3

REPORT INFORMATION
  Report Type: 
  Country: None (occurrence: None)
  Receive Date: 20040809
  Receipt Date: 20040301
  Transmission Date: 20050211
  Serious: Yes (Hospitalization, Other)
  Sender: FDA-Public Use
  Company Number: US-GLAXOSMITHKLINE-A0500666A

PATIENT
  Age: 65 Year
  Sex: Female

DRUGS (4)
  1. PAXIL [Suspect]
     Indication: SYNCOPE VASOVAGAL
     Dosage: 10MG PER DAY
     Route: 048
     Dates: start: 20040225, end: 20040226
  2. CALCIUM [Concomitant]
  3. PULMICORT [Concomitant]
  4. MAXAIR [Concomitant]

REACTIONS (3)
  - ATRIAL FIBRILLATION [None]
  - DYSPNOEA [None]
  - HEART RATE INCREASED [None]
